FAERS Safety Report 4931743-9 (Version None)
Quarter: 2006Q1

REPORT INFORMATION
  Report Type: 
  Country: None (occurrence: None)
  Receive Date: 20060106
  Receipt Date: 20051130
  Transmission Date: 20060701
  Serious: No
  Sender: FDA-Public Use
  Company Number: 200512767BWH

PATIENT
  Age: 81 Year
  Sex: Male

DRUGS (3)
  1. LEVITRA [Suspect]
     Dosage: 20 MG, TOTAL DAILY, ORAL; 10 MG, TOTAL DAILY, ORAL
     Route: 048
     Dates: start: 20050101
  2. VITAMINS [Concomitant]
  3. SELENIUM SULFIDE [Concomitant]

REACTIONS (2)
  - PENILE PAIN [None]
  - PETECHIAE [None]
